FAERS Safety Report 11211300 (Version 1)
Quarter: 2015Q2

REPORT INFORMATION
  Report Type: Spontaneous
  Country: US (occurrence: None)
  Receive Date: 20150619
  Receipt Date: 20150619
  Transmission Date: 20150821
  Serious: Yes (Hospitalization)
  Sender: FDA-Public Use
  Company Number: None

PATIENT
  Age: 57 Year
  Sex: Male
  Weight: 149.6 kg

DRUGS (8)
  1. APIXIBAN [Concomitant]
     Active Substance: APIXABAN
  2. OMNIPAQUE [Suspect]
     Active Substance: IOHEXOL
     Indication: SCAN WITH CONTRAST
     Dosage: RECENT
     Route: 042
  3. RYTHMOL [Concomitant]
     Active Substance: PROPAFENONE HYDROCHLORIDE
  4. CARDIZEM CD [Concomitant]
     Active Substance: DILTIAZEM HYDROCHLORIDE
  5. LASIX [Concomitant]
     Active Substance: FUROSEMIDE
  6. EFFEXOR [Concomitant]
     Active Substance: VENLAFAXINE HYDROCHLORIDE
  7. ASA [Concomitant]
     Active Substance: ASPIRIN
  8. ZANTAC [Concomitant]
     Active Substance: RANITIDINE HYDROCHLORIDE

REACTIONS (6)
  - Acute kidney injury [None]
  - Hypoperfusion [None]
  - Cardiovascular insufficiency [None]
  - Contrast media reaction [None]
  - Hyperkalaemia [None]
  - Hypotension [None]

NARRATIVE: CASE EVENT DATE: 20141118
